FAERS Safety Report 7544047-5 (Version None)
Quarter: 2011Q2

REPORT INFORMATION
  Report Type: 
  Country: None (occurrence: None)
  Receive Date: 20110613
  Receipt Date: 20050803
  Transmission Date: 20111010
  Serious: Yes (Other)
  Sender: FDA-Public Use
  Company Number: PHHO2005CA09151

PATIENT
  Sex: Male

DRUGS (4)
  1. HYDROCHLOROTHIAZIDE [Concomitant]
  2. SANDOSTATIN LAR [Suspect]
     Indication: CARCINOID TUMOUR
     Dosage: 40 MG, EVERY 4 WEEKS
     Dates: start: 20020702
  3. ALLOPURINOL [Concomitant]
  4. COZAAR [Concomitant]

REACTIONS (6)
  - MASS [None]
  - GOUT [None]
  - ARTHRITIS [None]
  - HYPERSENSITIVITY [None]
  - EPISTAXIS [None]
  - LACRIMATION INCREASED [None]
